FAERS Safety Report 4299304-5 (Version None)
Quarter: 2004Q1

REPORT INFORMATION
  Report Type: 
  Country: None (occurrence: None)
  Receive Date: 20040217
  Receipt Date: 20040203
  Transmission Date: 20041129
  Serious: Yes (Death)
  Sender: FDA-Public Use
  Company Number: 2004007109

PATIENT
  Age: 3 Month
  Sex: Female
  Weight: 7.3 kg

DRUGS (1)
  1. DIPHENHYDRAMINE HCL [Suspect]
     Dosage: ORAL
     Route: 048

REACTIONS (6)
  - COMA [None]
  - MEDICATION ERROR [None]
  - RESPIRATORY ARREST [None]
  - THERAPEUTIC AGENT TOXICITY [None]
  - VICTIM OF CHILD ABUSE [None]
  - VICTIM OF HOMICIDE [None]
